FAERS Safety Report 12267395 (Version 1)
Quarter: 2016Q2

REPORT INFORMATION
  Report Type: Spontaneous
  Country: IN (occurrence: US)
  Receive Date: 20160414
  Receipt Date: 20160414
  Transmission Date: 20160815
  Serious: Yes (Death, Hospitalization, Other)
  Sender: FDA-Public Use
  Company Number: IN-SCIEGEN PHARMACEUTICALS INC-2016SCILIT00070

PATIENT
  Age: 72 Year
  Sex: Male

DRUGS (4)
  1. NEVIRAPINE TABLETS [Suspect]
     Active Substance: NEVIRAPINE
     Indication: HIV TEST POSITIVE
     Dosage: 200 MG, QD FOR 2 WEEKS
     Route: 065
  2. NEVIRAPINE TABLETS [Suspect]
     Active Substance: NEVIRAPINE
     Dosage: 200 MG, BID FOR 2 WEEKS
     Route: 065
  3. LAMIVUDINE. [Suspect]
     Active Substance: LAMIVUDINE
     Indication: HIV TEST POSITIVE
     Dosage: 150 MG, UNK
     Route: 065
  4. ZIDOVUDINE. [Suspect]
     Active Substance: ZIDOVUDINE
     Indication: HIV TEST POSITIVE
     Dosage: 300 MG, UNK
     Route: 065

REACTIONS (18)
  - Rash erythematous [Not Recovered/Not Resolved]
  - Conjunctivitis [Not Recovered/Not Resolved]
  - Dermatitis bullous [Not Recovered/Not Resolved]
  - Pruritus [Not Recovered/Not Resolved]
  - Rash maculo-papular [Not Recovered/Not Resolved]
  - Mouth ulceration [Not Recovered/Not Resolved]
  - Hypokalaemia [Not Recovered/Not Resolved]
  - Toxic epidermal necrolysis [Fatal]
  - Feeding disorder [Not Recovered/Not Resolved]
  - Condition aggravated [Fatal]
  - Skin exfoliation [Not Recovered/Not Resolved]
  - Lip haemorrhage [Not Recovered/Not Resolved]
  - Transaminases increased [Not Recovered/Not Resolved]
  - Skin discolouration [Not Recovered/Not Resolved]
  - Hyponatraemia [Not Recovered/Not Resolved]
  - Body temperature increased [Not Recovered/Not Resolved]
  - Death [Fatal]
  - Nikolsky^s sign [Not Recovered/Not Resolved]
